FAERS Safety Report 25774622 (Version 1)
Quarter: 2025Q3

REPORT INFORMATION
  Report Type: Report from Study
  Country: IN (occurrence: IN)
  Receive Date: 20250908
  Receipt Date: 20250908
  Transmission Date: 20251021
  Serious: Yes (Other)
  Sender: ELI LILLY AND COMPANY
  Company Number: IN-ELI_LILLY_AND_COMPANY-IN202508028007

PATIENT
  Age: 6 Month
  Sex: Male

DRUGS (4)
  1. OLUMIANT [Suspect]
     Active Substance: BARICITINIB
     Indication: Gene mutation
     Dosage: 0.08 MG/KG, DAILY
     Route: 065
  2. OLUMIANT [Suspect]
     Active Substance: BARICITINIB
     Dosage: 0.1 MG/KG, DAILY
     Route: 065
  3. VORICONAZOLE [Concomitant]
     Active Substance: VORICONAZOLE
     Indication: Mucocutaneous candidiasis
     Dosage: 18 MG/KG, DAILY
     Route: 065
  4. VORICONAZOLE [Concomitant]
     Active Substance: VORICONAZOLE
     Dosage: 2 MG/KG, DAILY
     Route: 065

REACTIONS (9)
  - Pneumonia [Unknown]
  - Candida sepsis [Unknown]
  - Candida infection [Unknown]
  - H3N2 influenza [Unknown]
  - Adenovirus infection [Unknown]
  - Pulmonary tuberculosis [Unknown]
  - Molluscum contagiosum [Unknown]
  - Parvovirus infection [Unknown]
  - Off label use [Unknown]
